APPROVED DRUG PRODUCT: LEVONEST
Active Ingredient: ETHINYL ESTRADIOL; LEVONORGESTREL
Strength: 0.03MG,0.04MG,0.03MG;0.05MG,0.075MG,0.125MG
Dosage Form/Route: TABLET;ORAL-28
Application: A090719 | Product #001 | TE Code: AB
Applicant: NOVAST LABORATORIES LTD
Approved: Dec 29, 2010 | RLD: No | RS: No | Type: RX